FAERS Safety Report 11601464 (Version 1)
Quarter: 2015Q4

REPORT INFORMATION
  Report Type: Spontaneous
  Country: US (occurrence: US)
  Receive Date: 20151006
  Receipt Date: 20151006
  Transmission Date: 20160304
  Serious: No
  Sender: FDA-Public Use
  Company Number: US-AMGEN-USASP2015021377

PATIENT
  Age: 69 Year
  Sex: Female

DRUGS (2)
  1. PROLIA [Suspect]
     Active Substance: DENOSUMAB
     Indication: OSTEOPOROSIS POSTMENOPAUSAL
     Dosage: UNK
     Route: 065
     Dates: start: 20141110
  2. DEXAMETHASONE. [Concomitant]
     Active Substance: DEXAMETHASONE
     Indication: TEMPOROMANDIBULAR JOINT SYNDROME

REACTIONS (4)
  - Jaw disorder [Unknown]
  - Tooth disorder [Not Recovered/Not Resolved]
  - Dental caries [Unknown]
  - Abscess [Recovering/Resolving]

NARRATIVE: CASE EVENT DATE: 201502
